FAERS Safety Report 6243887-2 (Version None)
Quarter: 2009Q2

REPORT INFORMATION
  Report Type: 
  Country: None (occurrence: None)
  Receive Date: 20090623
  Receipt Date: 20090609
  Transmission Date: 20091009
  Serious: Yes (Hospitalization)
  Sender: FDA-Public Use
  Company Number: B0579351A

PATIENT
  Age: 50 Year
  Sex: Male

DRUGS (1)
  1. CALCIUM CARBONATE TABLET (CALCIUM CARBONATE) [Suspect]
     Indication: DYSPEPSIA
     Dosage: ORAL
     Route: 048

REACTIONS (10)
  - BLOOD 1,25-DIHYDROXYCHOLECALCIFEROL DECREASED [None]
  - DYSARTHRIA [None]
  - HAEMODIALYSIS [None]
  - HALLUCINATION [None]
  - HEADACHE [None]
  - MEMORY IMPAIRMENT [None]
  - MILK-ALKALI SYNDROME [None]
  - OCCULT BLOOD POSITIVE [None]
  - POLYDIPSIA [None]
  - POLYURIA [None]
